FAERS Safety Report 7476344-6 (Version None)
Quarter: 2011Q2

REPORT INFORMATION
  Report Type: 
  Country: None (occurrence: None)
  Receive Date: 20110512
  Receipt Date: 20110503
  Transmission Date: 20111010
  Serious: Yes (Hospitalization)
  Sender: FDA-Public Use
  Company Number: A0861794A

PATIENT
  Age: 52 Year
  Sex: Male
  Weight: 124.1 kg

DRUGS (11)
  1. FUROSEMIDE [Concomitant]
  2. ZANTAC [Concomitant]
  3. COZAAR [Concomitant]
  4. KLOR-CON [Concomitant]
  5. SIMVASTATIN [Concomitant]
  6. HUMALOG [Concomitant]
  7. LIPITOR [Concomitant]
  8. AVANDIA [Suspect]
     Dosage: 4MG PER DAY
     Route: 048
     Dates: start: 19990101, end: 20011107
  9. NPH INSULIN [Concomitant]
  10. ASPIRIN [Concomitant]
  11. GLUCOPHAGE [Concomitant]

REACTIONS (4)
  - MYOCARDIAL INFARCTION [None]
  - ATRIAL FIBRILLATION [None]
  - CARDIAC FAILURE CONGESTIVE [None]
  - PAIN [None]
